FAERS Safety Report 5237420-1 (Version None)
Quarter: 2007Q1

REPORT INFORMATION
  Report Type: 
  Country: None (occurrence: None)
  Receive Date: 20070213
  Receipt Date: 20070205
  Transmission Date: 20070707
  Serious: Yes (Other)
  Sender: FDA-Public Use
  Company Number: GB-ABBOTT-07P-167-0358664-00

PATIENT
  Age: 51 Year
  Sex: Female

DRUGS (2)
  1. CLARITHROMYCIN [Suspect]
     Indication: TRACHEITIS
     Dates: start: 20070117, end: 20070119
  2. DICLOFENAC SODIUM [Concomitant]
     Indication: ARTHRALGIA
     Dates: start: 20070110, end: 20070117

REACTIONS (1)
  - VASCULITIS [None]
